FAERS Safety Report 17447235 (Version 2)
Quarter: 2020Q4

REPORT INFORMATION
  Report Type: Report from Study
  Country: None (occurrence: US)
  Receive Date: 20200221
  Receipt Date: 20201117
  Transmission Date: 20210113
  Serious: Yes (Other)
  Sender: FDA-Public Use
  Company Number: US-ABBVIE-20P-163-3284924-00

PATIENT
  Age: 57 Year
  Sex: Male

DRUGS (1)
  1. RINVOQ [Suspect]
     Active Substance: UPADACITINIB
     Indication: PSORIATIC ARTHROPATHY
     Route: 048

REACTIONS (8)
  - Eye discharge [Recovering/Resolving]
  - Pain [Unknown]
  - Mobility decreased [Not Recovered/Not Resolved]
  - Rheumatoid arthritis [Unknown]
  - Vision blurred [Not Recovered/Not Resolved]
  - Gout [Not Recovered/Not Resolved]
  - Drug ineffective [Unknown]
  - Pain in extremity [Not Recovered/Not Resolved]

NARRATIVE: CASE EVENT DATE: 20200217
